FAERS Safety Report 4838914-0 (Version None)
Quarter: 2005Q4

REPORT INFORMATION
  Report Type: 
  Country: None (occurrence: None)
  Receive Date: 20051024
  Receipt Date: 20050930
  Transmission Date: 20060501
  Serious: No
  Sender: FDA-Public Use
  Company Number: 218196

PATIENT
  Sex: Male

DRUGS (1)
  1. XOLAIR [Suspect]
     Indication: ASTHMA
     Dosage: 375, Q2M
     Dates: start: 20050120, end: 20050620

REACTIONS (2)
  - ANOREXIA [None]
  - PALLOR [None]
